FAERS Safety Report 18372550 (Version 6)
Quarter: 2020Q4

REPORT INFORMATION
  Report Type: Report from Study
  Country: CO (occurrence: CO)
  Receive Date: 20201012
  Receipt Date: 20201230
  Transmission Date: 20210114
  Serious: Yes (Other)
  Sender: FDA-Public Use
  Company Number: NVSC2020CO272762

PATIENT
  Sex: Female
  Weight: 65 kg

DRUGS (8)
  1. KISQALI [Suspect]
     Active Substance: RIBOCICLIB
     Indication: BREAST CANCER METASTATIC
     Dosage: 600 MG, QD (3 TABLETS OF 200 MG)
     Route: 048
     Dates: start: 20200825
  2. BUSCAPINA [Concomitant]
     Indication: ABDOMINAL PAIN UPPER
     Dosage: UNK, PRN (WHEN NEED IT) (STARTED 2 MONTHS AGO)
     Route: 048
  3. LEVOTHYROXINE. [Concomitant]
     Active Substance: LEVOTHYROXINE
     Dosage: 50 MG, QD (1 OF 50 MG) (15 YERAS AGO)
     Route: 048
  4. FEMARA [Suspect]
     Active Substance: LETROZOLE
     Indication: BREAST CANCER
     Dosage: 2.5 MG, QD
     Route: 048
     Dates: start: 20200825
  5. CALCIUM [Concomitant]
     Active Substance: CALCIUM
     Indication: BLOOD CALCIUM ABNORMAL
     Dosage: UNK, QD
     Route: 048
  6. CALCIUM [Concomitant]
     Active Substance: CALCIUM
     Dosage: 1 UNK, QD
     Route: 048
     Dates: start: 202011
  7. LEVOTHYROXINE. [Concomitant]
     Active Substance: LEVOTHYROXINE
     Indication: HYPOTHYROIDISM
     Dosage: 50 MG, QD (1 OF 50 MG)
     Route: 048
     Dates: start: 202003
  8. BUSCAPINA [Concomitant]
     Dosage: 10 MG (AT NEED)
     Route: 048
     Dates: start: 202003

REACTIONS (11)
  - Product use in unapproved indication [Unknown]
  - Lip dry [Not Recovered/Not Resolved]
  - Tongue dry [Not Recovered/Not Resolved]
  - Pruritus [Recovered/Resolved]
  - Dry mouth [Recovered/Resolved]
  - Arthralgia [Not Recovered/Not Resolved]
  - Abdominal pain upper [Unknown]
  - Alopecia [Unknown]
  - Nasal dryness [Recovered/Resolved]
  - Pain in extremity [Unknown]
  - Helicobacter infection [Recovered/Resolved]
